FAERS Safety Report 8383667 (Version 4)
Quarter: 2012Q4

REPORT INFORMATION
  Report Type: 
  Country: JP (occurrence: JP)
  Receive Date: 20120201
  Receipt Date: 20121114
  Transmission Date: 20130627
  Serious: Yes (Hospitalization, Other)
  Sender: FDA-Public Use
  Company Number: PHHY2012JP006854

PATIENT
  Age: 64 Year
  Sex: Male
  Weight: 47 kg

DRUGS (13)
  1. ZOMETA [Suspect]
     Indication: METASTASES TO BONE
     Dosage: 04 mg, per administration
     Route: 041
     Dates: start: 20111115, end: 20120110
  2. CASODEX [Suspect]
     Dosage: 80 mg, daily
     Route: 048
     Dates: start: 20111025
  3. SENNOSIDE [Concomitant]
  4. MAGLAX [Concomitant]
  5. NOVAMIN [Concomitant]
  6. TAKEPRON [Concomitant]
  7. CELECOX [Concomitant]
  8. REBAMIPIDE [Concomitant]
  9. CONIEL [Concomitant]
  10. DECADRON [Concomitant]
  11. MYSLEE [Concomitant]
  12. OXYCONTIN [Concomitant]
     Route: 048
  13. OXINORM [Concomitant]
     Route: 048

REACTIONS (9)
  - Pulmonary oedema [Recovered/Resolved]
  - Respiratory tract inflammation [Recovering/Resolving]
  - Pleural effusion [Unknown]
  - White blood cell count increased [Unknown]
  - C-reactive protein increased [Unknown]
  - Malaise [Unknown]
  - General physical health deterioration [Unknown]
  - Inflammation [Unknown]
  - Blood alkaline phosphatase increased [Unknown]
